FAERS Safety Report 15062447 (Version 1)
Quarter: 2018Q2

REPORT INFORMATION
  Report Type: Spontaneous
  Country: US (occurrence: US)
  Receive Date: 20180625
  Receipt Date: 20180625
  Transmission Date: 20180711
  Serious: No
  Sender: FDA-Public Use
  Company Number: US-AMGEN-USASP2011023956

PATIENT
  Age: 47 Year
  Sex: Female

DRUGS (2)
  1. SENSIPAR [Suspect]
     Active Substance: CINACALCET HYDROCHLORIDE
     Indication: HYPERPARATHYROIDISM SECONDARY
     Dosage: 45 MG, QD
     Route: 048
     Dates: start: 20110225, end: 20110504
  2. RENVELA [Concomitant]
     Active Substance: SEVELAMER CARBONATE

REACTIONS (3)
  - Urticaria [Recovered/Resolved]
  - Incorrect dose administered [Unknown]
  - Pruritus [Recovered/Resolved]

NARRATIVE: CASE EVENT DATE: 20110506
